FAERS Safety Report 9286046 (Version 1)
Quarter: 2013Q2

REPORT INFORMATION
  Report Type: Spontaneous
  Country: US (occurrence: US)
  Receive Date: 20130513
  Receipt Date: 20130513
  Transmission Date: 20140414
  Serious: No
  Sender: FDA-Public Use
  Company Number: US-ASTRAZENECA-2013SE31284

PATIENT
  Age: 53 Year
  Sex: Male
  Weight: 59 kg

DRUGS (1)
  1. SEROQUEL XR [Suspect]
     Indication: DEPRESSION
     Route: 048
     Dates: start: 201303, end: 20130429

REACTIONS (6)
  - Malaise [Unknown]
  - Headache [Unknown]
  - Disorientation [Unknown]
  - Tremor [Unknown]
  - Intentional drug misuse [Unknown]
  - Drug dose omission [Unknown]
